FAERS Safety Report 6345497-5 (Version None)
Quarter: 2009Q3

REPORT INFORMATION
  Report Type: 
  Country: None (occurrence: None)
  Receive Date: 20090909
  Receipt Date: 20090831
  Transmission Date: 20100115
  Serious: Yes (Other)
  Sender: FDA-Public Use
  Company Number: ES-BRISTOL-MYERS SQUIBB COMPANY-14767388

PATIENT
  Age: 48 Year
  Sex: Female

DRUGS (9)
  1. DIDANOSINE [Suspect]
     Indication: ANTIRETROVIRAL THERAPY
  2. STAVUDINE [Suspect]
     Indication: ANTIRETROVIRAL THERAPY
  3. SAQUINAVIR [Suspect]
     Indication: ANTIRETROVIRAL THERAPY
  4. TENOFOVIR [Suspect]
     Indication: ANTIRETROVIRAL THERAPY
  5. NEVIRAPINE [Suspect]
     Indication: ANTIRETROVIRAL THERAPY
  6. LAMIVUDINE [Suspect]
     Indication: ANTIRETROVIRAL THERAPY
  7. LOPINAVIR [Suspect]
     Indication: ANTIRETROVIRAL THERAPY
  8. RITONAVIR [Suspect]
     Indication: ANTIRETROVIRAL THERAPY
  9. ZIDOVUDINE [Suspect]
     Indication: ANTIRETROVIRAL THERAPY

REACTIONS (1)
  - PORTAL HYPERTENSION [None]
